FAERS Safety Report 8872297 (Version 1)
Quarter: 2012Q4

REPORT INFORMATION
  Report Type: 
  Country: GR (occurrence: GR)
  Receive Date: 20121030
  Receipt Date: 20121030
  Transmission Date: 20130627
  Serious: Yes (Other)
  Sender: FDA-Public Use
  Company Number: GR-AMGEN-GRCSP2012067624

PATIENT
  Age: 30 Year
  Sex: Female

DRUGS (2)
  1. NPLATE [Suspect]
     Indication: IDIOPATHIC THROMBOCYTOPENIC PURPURA
     Dosage: UNK
     Dates: start: 2012
  2. MABTHERA [Concomitant]
     Dosage: UNK
     Dates: start: 2012

REACTIONS (2)
  - Therapeutic response decreased [Unknown]
  - Neutralising antibodies [Unknown]
